FAERS Safety Report 7495568-5 (Version None)
Quarter: 2011Q2

REPORT INFORMATION
  Report Type: 
  Country: None (occurrence: None)
  Receive Date: 20110523
  Receipt Date: 20110511
  Transmission Date: 20111010
  Serious: Yes (Hospitalization, Other)
  Sender: FDA-Public Use
  Company Number: JP-JNJFOC-20110401623

PATIENT
  Sex: Female
  Weight: 41 kg

DRUGS (15)
  1. RISPERDAL [Concomitant]
     Route: 048
     Dates: end: 20110227
  2. NELBON [Concomitant]
     Route: 048
  3. INVEGA [Suspect]
     Route: 048
     Dates: start: 20110330, end: 20110401
  4. CONTOMIN [Concomitant]
     Route: 048
  5. SINLESTAL [Concomitant]
     Route: 048
  6. LODOPIN [Concomitant]
     Route: 048
     Dates: end: 20110227
  7. AMARYL [Concomitant]
     Route: 048
     Dates: end: 20110318
  8. PYRETHIA [Concomitant]
     Route: 048
  9. AMOBAN [Concomitant]
     Route: 048
  10. NOVOLIN N [Concomitant]
     Route: 065
  11. AKINETON [Concomitant]
     Route: 048
  12. TEGRETOL [Concomitant]
     Route: 048
  13. INSULIN [Concomitant]
     Route: 065
  14. LODOPIN [Concomitant]
     Route: 048
     Dates: start: 20110401
  15. INVEGA [Suspect]
     Indication: SCHIZOPHRENIA
     Route: 048
     Dates: start: 20110218, end: 20110329

REACTIONS (3)
  - LOGORRHOEA [None]
  - AFFECT LABILITY [None]
  - HYPOGLYCAEMIA [None]
